FAERS Safety Report 7291459-3 (Version None)
Quarter: 2011Q1

REPORT INFORMATION
  Report Type: 
  Country: None (occurrence: None)
  Receive Date: 20110214
  Receipt Date: 20110131
  Transmission Date: 20110831
  Serious: Yes (Hospitalization, Other)
  Sender: FDA-Public Use
  Company Number: FR-CELGENEUS-056-21880-10122667

PATIENT
  Sex: Male

DRUGS (3)
  1. REVLIMID [Suspect]
     Indication: MULTIPLE MYELOMA
     Route: 048
     Dates: start: 20101103, end: 20101123
  2. ELOTUZUMAB [Suspect]
     Indication: MULTIPLE MYELOMA
     Route: 051
     Dates: start: 20101201, end: 20101201
  3. DEXAMETHASONE [Suspect]
     Indication: MULTIPLE MYELOMA
     Route: 048
     Dates: start: 20101130, end: 20101207

REACTIONS (2)
  - PROSTATITIS [None]
  - PROSTATE CANCER [None]
